FAERS Safety Report 16768771 (Version 1)
Quarter: 2019Q3

REPORT INFORMATION
  Report Type: Spontaneous
  Country: US (occurrence: US)
  Receive Date: 20190903
  Receipt Date: 20190903
  Transmission Date: 20191005
  Serious: No
  Sender: FDA-Public Use
  Company Number: US-SA-2019SA237728

PATIENT
  Sex: Male

DRUGS (7)
  1. ELITEK [Suspect]
     Active Substance: RASBURICASE
     Dosage: 15 MG, QD
  2. ETOPOSIDE PHOSPHATE [Concomitant]
     Active Substance: ETOPOSIDE PHOSPHATE
  3. ONCOVIN [Concomitant]
     Active Substance: VINCRISTINE SULFATE
  4. PREDNISONE. [Concomitant]
     Active Substance: PREDNISONE
  5. HYDROXYDAUNORUBICIN [Concomitant]
     Active Substance: DOXORUBICIN
  6. RITUXIMAB. [Concomitant]
     Active Substance: RITUXIMAB
  7. CYCLOPHOSPHAMIDE. [Concomitant]
     Active Substance: CYCLOPHOSPHAMIDE

REACTIONS (1)
  - Drug ineffective [Unknown]
